FAERS Safety Report 8604516 (Version 3)
Quarter: 2012Q4

REPORT INFORMATION
  Report Type: 
  Country: BR (occurrence: BR)
  Receive Date: 20120608
  Receipt Date: 20121001
  Transmission Date: 20130627
  Serious: Yes (Other)
  Sender: FDA-Public Use
  Company Number: PHHY2012BR048294

PATIENT
  Age: 7 Year
  Sex: Male

DRUGS (1)
  1. RITALINA [Suspect]
     Indication: PSYCHOMOTOR HYPERACTIVITY
     Dosage: 0.5 DF, UNK

REACTIONS (4)
  - Fall [Unknown]
  - Upper limb fracture [Unknown]
  - Pain in extremity [Unknown]
  - Hypoaesthesia [Unknown]
